FAERS Safety Report 11111385 (Version 1)
Quarter: 2015Q2

REPORT INFORMATION
  Report Type: Spontaneous
  Country: AU (occurrence: AU)
  Receive Date: 20150513
  Receipt Date: 20150513
  Transmission Date: 20150821
  Serious: Yes (Disabling)
  Sender: FDA-Public Use
  Company Number: AU-009507513-1505AUS001297

PATIENT
  Age: 47 Year
  Sex: Female
  Weight: 60 kg

DRUGS (1)
  1. MIRTAZAPINE GA [Suspect]
     Active Substance: MIRTAZAPINE
     Dosage: 30 MG, QD
     Route: 048
     Dates: start: 20141111, end: 20150217

REACTIONS (3)
  - Vertigo [Recovered/Resolved with Sequelae]
  - Emotional distress [Recovered/Resolved with Sequelae]
  - Irritability [Recovered/Resolved with Sequelae]

NARRATIVE: CASE EVENT DATE: 20150217
